FAERS Safety Report 4560054-9 (Version None)
Quarter: 2005Q1

REPORT INFORMATION
  Report Type: 
  Country: None (occurrence: None)
  Receive Date: 20050125
  Receipt Date: 20050113
  Transmission Date: 20050727
  Serious: Yes (Other)
  Sender: FDA-Public Use
  Company Number: US-JNJFOC-20050103950

PATIENT
  Sex: Male

DRUGS (22)
  1. INFLIXIMAB [Suspect]
     Indication: RHEUMATOID ARTHRITIS
     Route: 042
  2. HUMIRA [Concomitant]
  3. HYDROCODONE [Concomitant]
     Dosage: 5 MG, 1/2 TAB DAILY
  4. SULFASALAZINE [Concomitant]
  5. HYDROXYCHLOROQUINE SULFATE [Concomitant]
  6. ATENOLOL [Concomitant]
  7. DIOVAN [Concomitant]
  8. ISOSORBIDE [Concomitant]
  9. LORATADINE [Concomitant]
  10. ZOCOR [Concomitant]
  11. PROTONIX [Concomitant]
  12. KLOR-CON [Concomitant]
  13. ASPIRIN [Concomitant]
  14. MULTI-VITAMIN [Concomitant]
  15. MULTI-VITAMIN [Concomitant]
  16. MULTI-VITAMIN [Concomitant]
  17. MULTI-VITAMIN [Concomitant]
  18. MULTI-VITAMIN [Concomitant]
  19. MULTI-VITAMIN [Concomitant]
  20. MULTI-VITAMIN [Concomitant]
  21. MULTI-VITAMIN [Concomitant]
  22. FOLIC ACID [Concomitant]

REACTIONS (1)
  - BASAL CELL CARCINOMA [None]
